FAERS Safety Report 12554813 (Version 1)
Quarter: 2016Q3

REPORT INFORMATION
  Report Type: Spontaneous
  Country: US (occurrence: US)
  Receive Date: 20160713
  Receipt Date: 20160713
  Transmission Date: 20161109
  Serious: Yes (Other)
  Sender: FDA-Public Use
  Company Number: US-BEH-2016071019

PATIENT
  Age: 44 Year
  Sex: Female

DRUGS (1)
  1. HIZENTRA [Suspect]
     Active Substance: HUMAN IMMUNOGLOBULIN G
     Indication: PRODUCT USED FOR UNKNOWN INDICATION
     Dosage: 13 G 20%, QW
     Route: 065
     Dates: start: 2012

REACTIONS (1)
  - Infection susceptibility increased [Unknown]

NARRATIVE: CASE EVENT DATE: 201601
